FAERS Safety Report 17404751 (Version 1)
Quarter: 2020Q1

REPORT INFORMATION
  Report Type: Spontaneous
  Country: US (occurrence: US)
  Receive Date: 20200211
  Receipt Date: 20200211
  Transmission Date: 20200409
  Serious: Yes (Death, Other)
  Sender: FDA-Public Use
  Company Number: US-BAXTER-2020BAX002848

PATIENT
  Sex: Male

DRUGS (1)
  1. DIANEAL LOW CALCIUM PERITONEAL DIALYSIS SOLUTION WITH DEXTROSE [Suspect]
     Active Substance: CALCIUM CHLORIDE\DEXTROSE\MAGNESIUM CHLORIDE\SODIUM CHLORIDE\SODIUM LACTATE
     Indication: PERITONEAL DIALYSIS
     Route: 033
     Dates: start: 202001, end: 202001

REACTIONS (5)
  - Cardiac failure congestive [Unknown]
  - Sleep apnoea syndrome [Unknown]
  - Death [Fatal]
  - Back pain [Unknown]
  - Cardiac arrest [Unknown]

NARRATIVE: CASE EVENT DATE: 202001
